FAERS Safety Report 5179307-9 (Version None)
Quarter: 2006Q4

REPORT INFORMATION
  Report Type: 
  Country: None (occurrence: None)
  Receive Date: 20061219
  Receipt Date: 20061214
  Transmission Date: 20070319
  Serious: Yes (Other)
  Sender: FDA-Public Use
  Company Number: US-GLAXOSMITHKLINE-A0631623A

PATIENT
  Age: 6 Year
  Sex: Male

DRUGS (5)
  1. LAMOTRIGINE [Suspect]
     Indication: COMPLEX PARTIAL SEIZURES
     Dosage: 75MG TWICE PER DAY
     Route: 048
     Dates: start: 20060908
  2. LAMICTAL [Suspect]
     Indication: COMPLEX PARTIAL SEIZURES
     Route: 048
  3. FLUORIDE [Concomitant]
  4. MULTI-VITAMIN [Concomitant]
  5. CLONIDINE [Concomitant]

REACTIONS (14)
  - ABDOMINAL PAIN UPPER [None]
  - AGGRESSION [None]
  - ATTENTION DEFICIT/HYPERACTIVITY DISORDER [None]
  - CONVULSION [None]
  - DISTURBANCE IN ATTENTION [None]
  - DRUG INEFFECTIVE [None]
  - IMPULSIVE BEHAVIOUR [None]
  - MEDICATION ERROR [None]
  - MEMORY IMPAIRMENT [None]
  - MENTAL IMPAIRMENT [None]
  - PSYCHOMOTOR HYPERACTIVITY [None]
  - SLEEP DISORDER [None]
  - STARING [None]
  - THERAPEUTIC RESPONSE UNEXPECTED [None]
